FAERS Safety Report 10255547 (Version 1)
Quarter: 2014Q2

REPORT INFORMATION
  Report Type: Spontaneous
  Country: US (occurrence: US)
  Receive Date: 20140624
  Receipt Date: 20140624
  Transmission Date: 20141212
  Serious: No
  Sender: FDA-Public Use
  Company Number: US-PFIZER INC-2014171890

PATIENT
  Age: 66 Year
  Sex: Male
  Weight: 108.84 kg

DRUGS (3)
  1. DEPO-TESTOSTERONE [Suspect]
     Indication: BLOOD TESTOSTERONE DECREASED
     Dosage: 200 MG, TWO TIMES IN A MONTH
     Dates: start: 2009
  2. DEPO-TESTOSTERONE [Suspect]
     Dosage: 200 MG, MONTHLY
     Dates: end: 201401
  3. INSULIN [Concomitant]
     Dosage: 28 IU, 3X/DAY

REACTIONS (1)
  - Haematocrit increased [Unknown]
